FAERS Safety Report 7130252-9 (Version None)
Quarter: 2010Q4

REPORT INFORMATION
  Report Type: 
  Country: None (occurrence: None)
  Receive Date: 20101201
  Receipt Date: 20101118
  Transmission Date: 20110411
  Serious: Yes (Hospitalization, Other)
  Sender: FDA-Public Use
  Company Number: PHHY2010FI78602

PATIENT
  Sex: Male

DRUGS (8)
  1. EXELON [Suspect]
     Indication: DEMENTIA ALZHEIMER'S TYPE
     Dosage: 1 DF, BID
     Route: 048
     Dates: start: 20070122, end: 20101101
  2. CALCICHEW-D3 [Concomitant]
     Dosage: 1 DF BID, (CALCIUM CARBONATE 500MG, CHOLECALCIFEROL 10 MICROGRAMS)
  3. OBSIDAN FE++ [Concomitant]
     Dosage: 1 DF, QD
  4. GLYBURIDE [Concomitant]
     Dosage: 1 DF, BID
  5. MEMANTINE HCL [Concomitant]
     Dosage: 1 DF, BID
  6. BISOPROLOL FUMARATE [Concomitant]
     Dosage: 1.5 DF DAILY
  7. LOVACOL [Concomitant]
     Dosage: 1 DF, QD
  8. DIFORMIN RETARD [Concomitant]
     Dosage: 1 DF, BID

REACTIONS (6)
  - FALL [None]
  - HAEMOGLOBIN DECREASED [None]
  - INCREASED TENDENCY TO BRUISE [None]
  - MUSCLE HAEMORRHAGE [None]
  - THROMBOCYTOPENIA [None]
  - TRAUMATIC HAEMATOMA [None]
